FAERS Safety Report 10084359 (Version 2)
Quarter: 2014Q2

REPORT INFORMATION
  Report Type: Spontaneous
  Country: US (occurrence: US)
  Receive Date: 20140417
  Receipt Date: 20140424
  Transmission Date: 20141212
  Serious: Yes (Hospitalization, Other)
  Sender: FDA-Public Use
  Company Number: US-BAXTER-2014BAX018955

PATIENT
  Sex: Female
  Weight: 69.46 kg

DRUGS (10)
  1. DIANEAL LOW CALCIUM [Suspect]
     Indication: RENAL FAILURE CHRONIC
     Route: 033
  2. DIANEAL LOW CALCIUM [Suspect]
     Route: 033
     Dates: start: 20140409
  3. DIANEAL LOW CALCIUM [Suspect]
     Route: 033
     Dates: start: 20140409
  4. DIANEAL LOW CALCIUM [Suspect]
     Indication: RENAL FAILURE CHRONIC
     Route: 033
  5. DIANEAL LOW CALCIUM [Suspect]
     Route: 033
     Dates: start: 20140409
  6. DIANEAL LOW CALCIUM [Suspect]
     Route: 033
     Dates: start: 20140409
  7. DIANEAL LOW CALCIUM [Suspect]
     Indication: RENAL FAILURE CHRONIC
     Route: 033
  8. DIANEAL LOW CALCIUM [Suspect]
     Route: 033
     Dates: start: 20140409
  9. DIANEAL LOW CALCIUM [Suspect]
     Route: 033
     Dates: start: 20140409
  10. INSULIN [Concomitant]
     Indication: DIABETES MELLITUS

REACTIONS (3)
  - Pericardial effusion [Recovered/Resolved]
  - Oedema [Recovering/Resolving]
  - Hypotension [Recovered/Resolved]
